FAERS Safety Report 8182224 (Version 5)
Quarter: 2013Q3

REPORT INFORMATION
  Report Type: Report from Study
  Country: CA (occurrence: CA)
  Receive Date: 20111014
  Receipt Date: 20130823
  Transmission Date: 20140515
  Serious: Yes (Hospitalization, Other)
  Sender: FDA-Public Use
  Company Number: CA-ROCHE-796947

PATIENT
  Age: 62 Year
  Sex: Female
  Weight: 72.6 kg

DRUGS (22)
  1. RITUXAN [Suspect]
     Indication: RHEUMATOID ARTHRITIS
     Dosage: DAY 1, 15
     Route: 042
  2. AMOXICILLIN [Suspect]
     Indication: PRODUCT USED FOR UNKNOWN INDICATION
     Route: 065
  3. ACTONEL [Suspect]
     Indication: PRODUCT USED FOR UNKNOWN INDICATION
     Route: 065
  4. MEDROL [Concomitant]
  5. ADALAT [Concomitant]
     Indication: BLOOD PRESSURE
  6. INSULIN [Concomitant]
  7. PREVACID [Concomitant]
  8. SEPTRA DS [Concomitant]
     Dosage: DRUG NAME MENTIONED AS CEPTRA DS, THERAPY DATES ; FOR 2 YEARS
     Route: 065
  9. COZAAR [Concomitant]
     Indication: BLOOD PRESSURE
  10. CALTRATE [Concomitant]
  11. FOLIC ACID [Concomitant]
  12. VITAMIN D3-5 [Concomitant]
  13. CRESTOR [Concomitant]
  14. MORPHINE [Concomitant]
     Indication: PAIN
  15. OXYCOCET [Concomitant]
     Indication: PAIN
  16. METRONIDAZOLE [Concomitant]
     Indication: ANTIBIOTIC THERAPY
     Dosage: DOSE : 14 PILLS
     Route: 065
  17. DIPHENHYDRAMINE HYDROCHLORIDE [Concomitant]
     Route: 048
  18. ACETAMINOFEN [Concomitant]
     Route: 048
  19. METHOTREXATE [Concomitant]
     Route: 065
  20. METHYLPREDNISOLONE [Concomitant]
     Route: 042
     Dates: start: 20100729
  21. HUMULIN [Concomitant]
  22. TECTA [Concomitant]
     Route: 065

REACTIONS (9)
  - Enteritis infectious [Recovering/Resolving]
  - Intestinal obstruction [Recovering/Resolving]
  - Angina pectoris [Recovering/Resolving]
  - Cardiac disorder [Not Recovered/Not Resolved]
  - Knee operation [Unknown]
  - Drug hypersensitivity [Not Recovered/Not Resolved]
  - Cystitis [Recovered/Resolved]
  - Musculoskeletal stiffness [Recovered/Resolved]
  - Drug hypersensitivity [Not Recovered/Not Resolved]
